FAERS Safety Report 21537480 (Version 2)
Quarter: 2022Q4

REPORT INFORMATION
  Report Type: Spontaneous
  Country: CA (occurrence: CA)
  Receive Date: 20221101
  Receipt Date: 20221215
  Transmission Date: 20230113
  Serious: Yes (Death, Hospitalization, Other)
  Sender: FDA-Public Use
  Company Number: CA-002147023-NVSC2020CA259905

PATIENT

DRUGS (1)
  1. RUXOLITINIB [Suspect]
     Active Substance: RUXOLITINIB
     Indication: Graft versus host disease in lung
     Dosage: UNK
     Route: 065

REACTIONS (15)
  - Acute coronary syndrome [Unknown]
  - Pneumothorax [Unknown]
  - Atrioventricular block [Unknown]
  - Haemodynamic instability [Fatal]
  - Pneumococcal sepsis [Fatal]
  - Hypoxia [Unknown]
  - Immunosuppression [Fatal]
  - Dyspnoea [Unknown]
  - Drug ineffective [Unknown]
  - Therapeutic response changed [Unknown]
  - Pneumonia pseudomonal [Fatal]
  - Septic shock [Unknown]
  - Thrombocytopenia [Unknown]
  - Chronic graft versus host disease [Fatal]
  - Respiratory failure [Fatal]
